FAERS Safety Report 17564738 (Version 1)
Quarter: 2020Q1

REPORT INFORMATION
  Report Type: Spontaneous
  Country: US (occurrence: US)
  Receive Date: 20200313
  Receipt Date: 20200313
  Transmission Date: 20200409
  Serious: No
  Sender: FDA-Public Use
  Company Number: None

PATIENT
  Age: 29 Year
  Sex: Female

DRUGS (1)
  1. TOBI PODHALER [Suspect]
     Active Substance: TOBRAMYCIN
     Route: 055

REACTIONS (4)
  - Influenza [None]
  - Cough [None]
  - Nausea [None]
  - Paranasal sinus hypersecretion [None]

NARRATIVE: CASE EVENT DATE: 20200228
